FAERS Safety Report 11398481 (Version 1)
Quarter: 2015Q3

REPORT INFORMATION
  Report Type: Spontaneous
  Country: US (occurrence: None)
  Receive Date: 20150818
  Receipt Date: 20150818
  Transmission Date: 20151125
  Serious: Yes (Disabling)
  Sender: FDA-Public Use
  Company Number: None

PATIENT
  Age: 63 Year
  Sex: Male
  Weight: 71.67 kg

DRUGS (2)
  1. LORAZEPAM. [Concomitant]
     Active Substance: LORAZEPAM
  2. JUBLIA [Suspect]
     Active Substance: EFINACONAZOLE
     Indication: ONYCHOMYCOSIS
     Route: 061

REACTIONS (8)
  - Pallor [None]
  - Dyspnoea [None]
  - Cough [None]
  - Local swelling [None]
  - Asthenia [None]
  - Drug ineffective [None]
  - Infection [None]
  - Skin exfoliation [None]

NARRATIVE: CASE EVENT DATE: 20150802
